FAERS Safety Report 7940350-5 (Version None)
Quarter: 2011Q4

REPORT INFORMATION
  Report Type: 
  Country: None (occurrence: None)
  Receive Date: 20111127
  Receipt Date: 20111027
  Transmission Date: 20120403
  Serious: No
  Sender: FDA-Public Use
  Company Number: US-TEVA-306934USA

PATIENT
  Sex: Male

DRUGS (1)
  1. BUDESONIDE [Suspect]
     Dosage: 0.5 MG/2 ML

REACTIONS (1)
  - RESPIRATION ABNORMAL [None]
